FAERS Safety Report 19911591 (Version 2)
Quarter: 2021Q4

REPORT INFORMATION
  Report Type: Spontaneous
  Country: KR (occurrence: KR)
  Receive Date: 20211004
  Receipt Date: 20211011
  Transmission Date: 20220304
  Serious: Yes (Other)
  Sender: FDA-Public Use
  Company Number: KR-VIIV HEALTHCARE ULC-KR2021APC203157

PATIENT
  Age: 43 Year
  Sex: Male
  Weight: 60 kg

DRUGS (36)
  1. KIVEXA [Suspect]
     Active Substance: ABACAVIR SULFATE\LAMIVUDINE
     Indication: HIV infection
     Dosage: UNK
     Route: 048
     Dates: start: 20140619, end: 20140814
  2. RIFABUTIN [Suspect]
     Active Substance: RIFABUTIN
     Indication: Tuberculosis
     Dosage: UNK
     Route: 048
     Dates: start: 20140619, end: 20140622
  3. RIFABUTIN [Suspect]
     Active Substance: RIFABUTIN
     Dosage: UNK
     Dates: start: 20140713
  4. DARUNAVIR [Suspect]
     Active Substance: DARUNAVIR
     Indication: HIV infection
     Dosage: UNK
     Route: 048
     Dates: start: 20140619
  5. ETHAMBUTOL [Suspect]
     Active Substance: ETHAMBUTOL HYDROCHLORIDE
     Indication: Tuberculosis
     Dosage: UNK
     Route: 048
     Dates: start: 20140619, end: 20140622
  6. ETHAMBUTOL [Suspect]
     Active Substance: ETHAMBUTOL HYDROCHLORIDE
     Dosage: UNK
     Dates: start: 20140713
  7. ARIPIPRAZOLE [Concomitant]
     Active Substance: ARIPIPRAZOLE
     Indication: Depression
     Dosage: UNK
     Route: 048
     Dates: start: 20140710, end: 20140814
  8. AZITHROMYCIN ANHYDROUS [Concomitant]
     Active Substance: AZITHROMYCIN ANHYDROUS
     Indication: Tuberculosis
     Dosage: UNK
     Route: 048
     Dates: start: 20140620, end: 20140628
  9. AZITHROMYCIN ANHYDROUS [Concomitant]
     Active Substance: AZITHROMYCIN ANHYDROUS
     Dosage: UNK
     Dates: start: 20140713
  10. CALCIUM GLUCONATE [Concomitant]
     Active Substance: CALCIUM GLUCONATE
     Indication: Calcium metabolism disorder
     Dosage: UNK
     Route: 042
     Dates: start: 20140621, end: 20140622
  11. CEFTRIAXONE [Concomitant]
     Active Substance: CEFTRIAXONE
     Indication: Pneumonia pneumococcal
     Dosage: UNK
     Route: 042
     Dates: start: 20140622, end: 20140623
  12. CEFTRIAXONE [Concomitant]
     Active Substance: CEFTRIAXONE
     Indication: Pneumonia bacterial
     Dosage: UNK
     Route: 042
     Dates: start: 20140707, end: 20140715
  13. CIMETIDINE [Concomitant]
     Active Substance: CIMETIDINE
     Indication: Prophylaxis
     Dosage: UNK
     Route: 042
     Dates: start: 20140616, end: 20140621
  14. CLINDAMYCIN [Concomitant]
     Active Substance: CLINDAMYCIN
     Indication: Pneumonia
     Dosage: UNK
     Route: 042
     Dates: start: 20140712, end: 20140717
  15. ERTAPENEM. [Concomitant]
     Active Substance: ERTAPENEM SODIUM
     Indication: Pneumonia pneumococcal
     Dosage: UNK
     Route: 042
     Dates: start: 20140624, end: 20140626
  16. FAMOTIDINE [Concomitant]
     Active Substance: FAMOTIDINE
     Indication: Prophylaxis
     Dosage: UNK
     Route: 048
     Dates: start: 20140622, end: 20140717
  17. FLUCONAZOLE [Concomitant]
     Active Substance: FLUCONAZOLE
     Indication: Fungal infection
     Dosage: UNK
     Route: 048
     Dates: start: 20140620, end: 20140717
  18. FOLIC ACID [Concomitant]
     Active Substance: FOLIC ACID
     Indication: Prophylaxis
     Dosage: UNK
     Route: 048
     Dates: start: 20140713, end: 20140731
  19. GANCICLOVIR [Concomitant]
     Active Substance: GANCICLOVIR
     Indication: Cytomegalovirus infection
     Dosage: UNK
     Dates: start: 20140625, end: 20140708
  20. HYDROCORTISONE [Concomitant]
     Active Substance: HYDROCORTISONE
     Indication: Adrenal disorder
     Dosage: UNK
     Route: 042
     Dates: start: 20140715, end: 20140717
  21. LACTULOSE [Concomitant]
     Active Substance: LACTULOSE
     Indication: Prophylaxis
     Dosage: UNK
     Route: 048
     Dates: start: 20140708, end: 20140731
  22. MEROPENEM [Concomitant]
     Active Substance: MEROPENEM
     Indication: Parasitic pneumonia
     Dosage: UNK
     Route: 042
     Dates: start: 20140618, end: 20140622
  23. MEROPENEM [Concomitant]
     Active Substance: MEROPENEM
     Dosage: UNK
     Dates: start: 20140627, end: 20140707
  24. METHYLPREDNISOLONE [Concomitant]
     Active Substance: METHYLPREDNISOLONE
     Indication: Parasitic pneumonia
     Dosage: UNK
     Route: 042
     Dates: start: 20140618, end: 20140620
  25. METOCLOPRAMIDE [Concomitant]
     Active Substance: METOCLOPRAMIDE
     Indication: Prophylaxis
     Dosage: UNK
     Route: 030
     Dates: start: 20140708, end: 20140716
  26. PALIPERIDONE [Concomitant]
     Active Substance: PALIPERIDONE
     Indication: Depression
     Dosage: UNK
     Route: 048
     Dates: start: 20140701, end: 20140710
  27. PREDNISOLONE [Concomitant]
     Active Substance: PREDNISOLONE
     Indication: Parasitic pneumonia
     Dosage: UNK
     Dates: start: 20140620, end: 20140623
  28. PREDNISOLONE [Concomitant]
     Active Substance: PREDNISOLONE
     Dosage: UNK
     Dates: start: 20140627, end: 20140711
  29. PRIMAQUINE PHOSPHATE [Concomitant]
     Active Substance: PRIMAQUINE PHOSPHATE
     Indication: Parasitic pneumonia
     Dosage: UNK
     Route: 048
     Dates: start: 20140712, end: 20140717
  30. RITONAVIR [Concomitant]
     Active Substance: RITONAVIR
     Indication: HIV infection
     Dosage: UNK
     Dates: start: 20140618
  31. SULFAMETHOXAZOLE\TRIMETHOPRIM [Concomitant]
     Active Substance: SULFAMETHOXAZOLE\TRIMETHOPRIM
     Indication: Parasitic pneumonia
     Dosage: UNK
     Route: 048
     Dates: start: 20140621, end: 20140627
  32. SULFAMETHOXAZOLE\TRIMETHOPRIM [Concomitant]
     Active Substance: SULFAMETHOXAZOLE\TRIMETHOPRIM
     Indication: Parasitic pneumonia
     Dosage: UNK
     Route: 042
     Dates: start: 20140618, end: 20140620
  33. SULFAMETHOXAZOLE\TRIMETHOPRIM [Concomitant]
     Active Substance: SULFAMETHOXAZOLE\TRIMETHOPRIM
     Dosage: UNK
     Route: 042
     Dates: start: 20140627, end: 20140712
  34. VANCOMYCIN [Concomitant]
     Active Substance: VANCOMYCIN
     Indication: Parasitic pneumonia
     Dosage: UNK
     Route: 042
     Dates: start: 20140618, end: 20140619
  35. POTASSIUM CHLORIDE [Suspect]
     Active Substance: POTASSIUM CHLORIDE
     Indication: Hypokalaemia
     Dosage: UNK
     Dates: start: 20140625, end: 20140627
  36. MEGESTROL [Suspect]
     Active Substance: MEGESTROL
     Indication: Decreased appetite
     Dosage: UNK
     Route: 048
     Dates: start: 20040706, end: 20140707

REACTIONS (7)
  - Neutropenia [Not Recovered/Not Resolved]
  - Hypokalaemia [Recovered/Resolved]
  - Adrenal insufficiency [Not Recovered/Not Resolved]
  - Granulocytopenia [Recovered/Resolved]
  - Decreased appetite [Recovered/Resolved]
  - Depression [Not Recovered/Not Resolved]
  - Hypophosphataemia [Recovered/Resolved]

NARRATIVE: CASE EVENT DATE: 20140620
